FAERS Safety Report 14997620 (Version 1)
Quarter: 2018Q2

REPORT INFORMATION
  Report Type: Spontaneous
  Country: DK (occurrence: DK)
  Receive Date: 20180611
  Receipt Date: 20180611
  Transmission Date: 20180711
  Serious: Yes (Hospitalization)
  Sender: FDA-Public Use
  Company Number: DK-B.I. PHARMACEUTICALS,INC./RIDGEFIELD-2018-12-001939

PATIENT
  Age: 78 Year
  Sex: Male

DRUGS (6)
  1. SIMVASTATIN ACTAVIS [Concomitant]
     Active Substance: SIMVASTATIN
     Indication: HYPERCHOLESTEROLAEMIA
     Dosage: STYRKE: 40 MG
     Route: 048
     Dates: start: 20130916
  2. DIGOXIN DAK [Concomitant]
     Active Substance: DIGOXIN
     Indication: ARRHYTHMIA
     Dosage: STYRKE: 62,5 ?G
     Route: 048
     Dates: start: 20141022
  3. DAIVOBET [Concomitant]
     Active Substance: BETAMETHASONE DIPROPIONATE\CALCIPOTRIENE
     Indication: PSORIASIS
     Dosage: STYRKE: 50+500 ?G/G. DOSIS: 1 P?SM?RING DAGLIG
     Route: 065
     Dates: start: 20150319
  4. PANODIL [Concomitant]
     Active Substance: ACETAMINOPHEN
     Indication: PAIN
     Dosage: STYRKE: 665 MG
     Route: 048
     Dates: start: 20160802
  5. PRADAXA [Suspect]
     Active Substance: DABIGATRAN ETEXILATE MESYLATE
     Indication: ATRIAL FIBRILLATION
     Dosage: STYRKE: 150 MG
     Route: 048
     Dates: start: 2014, end: 20180406
  6. METOPROLOLSUCCINAT HEXAL [Concomitant]
     Active Substance: METOPROLOL SUCCINATE
     Indication: ARRHYTHMIA
     Dosage: STYRKE: 50 MG
     Route: 048
     Dates: start: 20141216

REACTIONS (7)
  - Hemiparesis [Not Recovered/Not Resolved]
  - Cerebrovascular accident [Not Recovered/Not Resolved]
  - Facial paresis [Not Recovered/Not Resolved]
  - Intracranial haematoma [Not Recovered/Not Resolved]
  - Dysarthria [Not Recovered/Not Resolved]
  - Asthenia [Not Recovered/Not Resolved]
  - Cerebral haemorrhage [Not Recovered/Not Resolved]

NARRATIVE: CASE EVENT DATE: 20180406
